FAERS Safety Report 20719355 (Version 1)
Quarter: 2022Q2

REPORT INFORMATION
  Report Type: Spontaneous
  Country: US (occurrence: None)
  Receive Date: 20220415
  Receipt Date: 20220415
  Transmission Date: 20220721
  Serious: Yes (Hospitalization)
  Sender: FDA-Public Use
  Company Number: None

PATIENT
  Age: 57 Year
  Sex: Female

DRUGS (1)
  1. SUNITINIB [Suspect]
     Active Substance: SUNITINIB
     Dosage: 50MG DAILY ORAL?
     Route: 048
     Dates: start: 202201

REACTIONS (4)
  - Infection [None]
  - Asthenia [None]
  - Gait inability [None]
  - Movement disorder [None]

NARRATIVE: CASE EVENT DATE: 20220403
